FAERS Safety Report 4411725-6 (Version None)
Quarter: 2004Q3

REPORT INFORMATION
  Report Type: 
  Country: None (occurrence: None)
  Receive Date: 20040728
  Receipt Date: 20040719
  Transmission Date: 20050211
  Serious: Yes (Other)
  Sender: FDA-Public Use
  Company Number: 2004-06-2152

PATIENT
  Age: 52 Year
  Sex: Male

DRUGS (2)
  1. AERIUS TABLES (DESLORATADINE) 'LIKE CLARINEX' [Suspect]
     Indication: RHINITIS
     Dosage: 5 MG QD ORAL
     Route: 048
     Dates: start: 20040627, end: 20040629
  2. SECTRAL [Concomitant]

REACTIONS (1)
  - NODAL ARRHYTHMIA [None]
